FAERS Safety Report 11632079 (Version 1)
Quarter: 2015Q4

REPORT INFORMATION
  Report Type: Spontaneous
  Country: US (occurrence: None)
  Receive Date: 20151014
  Receipt Date: 20151014
  Transmission Date: 20160304
  Serious: Yes (Hospitalization)
  Sender: FDA-Public Use
  Company Number: None

PATIENT
  Age: 78 Year
  Sex: Female
  Weight: 74.2 kg

DRUGS (9)
  1. COMPAZINE [Concomitant]
     Active Substance: PROCHLORPERAZINE MALEATE
  2. CALCIUM + D [Concomitant]
     Active Substance: CALCIUM\VITAMIN D
  3. NORCO MVI [Concomitant]
  4. SENNA S [Concomitant]
     Active Substance: DOCUSATE SODIUM\SENNA LEAF
  5. ZOLPIDEM [Concomitant]
     Active Substance: ZOLPIDEM\ZOLPIDEM TARTRATE
  6. FLAX SEED POWDER [Concomitant]
  7. XARELTO [Suspect]
     Active Substance: RIVAROXABAN
     Indication: PULMONARY EMBOLISM
     Route: 048
     Dates: start: 20150923, end: 20151013
  8. DEXAMETHASONE. [Concomitant]
     Active Substance: DEXAMETHASONE
  9. FISH OIL [Concomitant]
     Active Substance: FISH OIL

REACTIONS (3)
  - Cerebral infarction [None]
  - Chills [None]
  - Dehydration [None]

NARRATIVE: CASE EVENT DATE: 20151010
